FAERS Safety Report 8878661 (Version 1)
Quarter: 2012Q4

REPORT INFORMATION
  Report Type: 
  Country: AR (occurrence: AR)
  Receive Date: 20121026
  Receipt Date: 20121026
  Transmission Date: 20130627
  Serious: Yes (Other)
  Sender: FDA-Public Use
  Company Number: PHHY2012AR095763

PATIENT
  Sex: Female

DRUGS (1)
  1. DIOVAN [Suspect]
     Indication: BLOOD PRESSURE
     Dosage: 1 DF, daily
     Route: 048

REACTIONS (2)
  - Uterine prolapse [Not Recovered/Not Resolved]
  - Concomitant disease progression [Not Recovered/Not Resolved]
